FAERS Safety Report 11092898 (Version 9)
Quarter: 2017Q3

REPORT INFORMATION
  Report Type: Report from Study
  Country: GB (occurrence: GB)
  Receive Date: 20150506
  Receipt Date: 20170803
  Transmission Date: 20171127
  Serious: Yes (Hospitalization)
  Sender: FDA-Public Use
  Company Number: GB-ROCHE-1562270

PATIENT
  Age: 50 Year
  Sex: Female

DRUGS (11)
  1. ZOMORPH [Concomitant]
     Active Substance: MORPHINE SULFATE
     Route: 065
     Dates: start: 201412
  2. IBUPROFEN. [Concomitant]
     Active Substance: IBUPROFEN
     Route: 065
     Dates: start: 2014
  3. LAXIDO [Concomitant]
     Active Substance: POLYETHYLENE GLYCOL 3350\POTASSIUM CHLORIDE\SODIUM BICARBONATE\SODIUM CHLORIDE
     Dosage: 1 POUCH
     Route: 065
     Dates: start: 2014
  4. TRAMADOL. [Concomitant]
     Active Substance: TRAMADOL
     Dosage: TOTAL DAILY DOSE : 50 MG
     Route: 065
     Dates: start: 20150304
  5. IBUPROFEN. [Concomitant]
     Active Substance: IBUPROFEN
     Route: 065
     Dates: start: 2014
  6. BEVACIZUMAB. [Suspect]
     Active Substance: BEVACIZUMAB
     Indication: OVARIAN CANCER
     Dosage: DATE OF LAST DOSE PRIOR TO SAE (LOOSE STOOLS AND RIGORS) : 10/MAR/2015.
     Route: 042
     Dates: start: 20150217
  7. ZOMORPH [Concomitant]
     Active Substance: MORPHINE SULFATE
     Route: 065
     Dates: start: 20150310
  8. NAPROXEN. [Concomitant]
     Active Substance: NAPROXEN
     Route: 065
     Dates: start: 201412
  9. TRAMADOL. [Concomitant]
     Active Substance: TRAMADOL
     Route: 065
     Dates: start: 2014
  10. ORAMORPH [Concomitant]
     Active Substance: MORPHINE SULFATE
     Route: 065
     Dates: start: 20141209
  11. CLOBAZAM [Concomitant]
     Active Substance: CLOBAZAM
     Route: 065
     Dates: start: 200807

REACTIONS (3)
  - Small intestinal obstruction [Recovered/Resolved]
  - Diarrhoea [Recovered/Resolved]
  - Chills [Recovered/Resolved]

NARRATIVE: CASE EVENT DATE: 20150327
